FAERS Safety Report 20586355 (Version 3)
Quarter: 2022Q3

REPORT INFORMATION
  Report Type: Spontaneous
  Country: BR (occurrence: BR)
  Receive Date: 20220313
  Receipt Date: 20220709
  Transmission Date: 20221026
  Serious: Yes (Hospitalization)
  Sender: FDA-Public Use
  Company Number: BR-TEVA BRAZIL-2022-BR-2015559

PATIENT
  Age: 34 Year
  Sex: Male
  Weight: 64 kg

DRUGS (7)
  1. TOBRAMYCIN [Suspect]
     Active Substance: TOBRAMYCIN
     Indication: Cystic fibrosis
     Dosage: MORE THAN A YEAR, 1 MONTH USE, ANOTHER MONTH NOT
     Route: 055
  2. TOBRAMYCIN [Suspect]
     Active Substance: TOBRAMYCIN
     Indication: Product used for unknown indication
     Dosage: 12 YEARS AGO.
     Route: 065
  3. CAYSTON [Suspect]
     Active Substance: AZTREONAM
     Indication: Product used for unknown indication
     Dosage: WHEN PATIENT TAKES TOBRAZOL, HE DOES NOT TAKE THIS ONE AND VICE-VERSA
  4. Pulmosine [Concomitant]
     Indication: Product used for unknown indication
  5. AZITHROMYCIN [Concomitant]
     Active Substance: AZITHROMYCIN
     Indication: Product used for unknown indication
  6. AZITHROMYCIN [Concomitant]
     Active Substance: AZITHROMYCIN
     Indication: Product used for unknown indication
     Dosage: ONE DAY AND ONE DAY NOT
  7. CREON [Concomitant]
     Active Substance: PANCRELIPASE AMYLASE\PANCRELIPASE LIPASE\PANCRELIPASE PROTEASE
     Indication: Product used for unknown indication

REACTIONS (5)
  - Drug resistance [Recovered/Resolved]
  - Pseudomonas infection [Not Recovered/Not Resolved]
  - Lung disorder [Recovered/Resolved]
  - Lung disorder [Not Recovered/Not Resolved]
  - Intercepted product storage error [Unknown]

NARRATIVE: CASE EVENT DATE: 20210101
